FAERS Safety Report 21962704 (Version 1)
Quarter: 2023Q1

REPORT INFORMATION
  Report Type: Spontaneous
  Country: US (occurrence: None)
  Receive Date: 20230206
  Receipt Date: 20230206
  Transmission Date: 20230417
  Serious: Yes (Hospitalization)
  Sender: FDA-Public Use
  Company Number: None

PATIENT
  Age: 64 Year
  Sex: Male
  Weight: 117.93 kg

DRUGS (14)
  1. ABIRATERONE ACETATE [Suspect]
     Active Substance: ABIRATERONE ACETATE
     Indication: Prostate cancer
     Dosage: FREQUENCY : DAILY;?
     Route: 048
     Dates: start: 20220604
  2. ALLOPURINOL [Concomitant]
     Active Substance: ALLOPURINOL
  3. AUGMENTIN [Concomitant]
  4. AZATHIOPRINE [Concomitant]
     Active Substance: AZATHIOPRINE
  5. FLUTICASONE PROPLONATE [Concomitant]
  6. FOLIC ACID [Concomitant]
  7. HEPARIN SODIUM [Concomitant]
  8. IBUPROFEN [Concomitant]
  9. LISINOPRIL-HYDROCHLOROTHIAZIDE [Concomitant]
  10. METHOTREXATE SODIUM [Concomitant]
  11. PREDNISONE [Concomitant]
  12. SYNTHROID [Concomitant]
  13. TAMSULOSIN HCI [Concomitant]
  14. WARFARIN SODIUM [Concomitant]

REACTIONS (4)
  - Internal haemorrhage [None]
  - Radiation injury [None]
  - Gastrointestinal haemorrhage [None]
  - Product dose omission in error [None]

NARRATIVE: CASE EVENT DATE: 20230131
